FAERS Safety Report 6199182-3 (Version None)
Quarter: 2009Q2

REPORT INFORMATION
  Report Type: 
  Country: None (occurrence: None)
  Receive Date: 20090522
  Receipt Date: 20090407
  Transmission Date: 20091009
  Serious: No
  Sender: FDA-Public Use
  Company Number: A0777575A

PATIENT
  Age: 12 Year
  Sex: Female

DRUGS (1)
  1. VERAMYST [Suspect]
     Indication: NASAL INFLAMMATION
     Dosage: 2SPR PER DAY
     Route: 045

REACTIONS (1)
  - DRUG INEFFECTIVE [None]
